FAERS Safety Report 9517849 (Version 2)
Quarter: 2014Q1

REPORT INFORMATION
  Report Type: Spontaneous
  Country: US (occurrence: None)
  Receive Date: 20130305
  Receipt Date: 20140306
  Transmission Date: 20141002
  Serious: Yes (Disabling, Other)
  Sender: FDA-Public Use
  Company Number: 163-21880-12121080

PATIENT
  Age: 54 Year
  Sex: Male

DRUGS (16)
  1. REVLIMID [Suspect]
     Indication: PLASMA CELL MYELOMA
     Dosage: 1 IN 1 D
     Route: 048
     Dates: start: 200909
  2. ACYCLOVIR [Concomitant]
  3. LIPITOR(ATORVASTATIN) [Concomitant]
  4. LEVAQUIN(LEVOFLOXACIN) [Concomitant]
  5. METHADONE [Concomitant]
  6. OMEPRAZOLE [Concomitant]
  7. ONDANSTERON [Concomitant]
  8. CALCIUM CARBONATE [Concomitant]
  9. LOMOTIL [Concomitant]
  10. ISOSORBIDE MONONITRATE [Concomitant]
  11. MILK OF MAGNESIA(MAGNESIUM HYDROXIDE) [Concomitant]
  12. LOPRESSOR (METOPROLOL TARTRATE) [Concomitant]
  13. MULTIVITAMINS [Concomitant]
  14. PRAVACHOL(PRAVASTATIN SODIUM) [Concomitant]
  15. DEXAMETHASONE [Concomitant]
  16. COENZYME(UBIDECARENONE) [Concomitant]

REACTIONS (5)
  - Neuropathy peripheral [None]
  - Full blood count abnormal [None]
  - Neuropathy peripheral [None]
  - Pancytopenia [None]
  - Renal failure [None]
